FAERS Safety Report 5914062-3 (Version None)
Quarter: 2008Q4

REPORT INFORMATION
  Report Type: 
  Country: None (occurrence: None)
  Receive Date: 20081009
  Receipt Date: 20081003
  Transmission Date: 20090506
  Serious: Yes (Hospitalization, Other)
  Sender: FDA-Public Use
  Company Number: US-CELGENEUS-163-21880-08091180

PATIENT
  Sex: Male
  Weight: 123.3 kg

DRUGS (2)
  1. REVLIMID [Suspect]
     Route: 048
     Dates: start: 20080904, end: 20080915
  2. CCI-779 [Suspect]
     Route: 051
     Dates: start: 20080904, end: 20080909

REACTIONS (4)
  - HYPOKALAEMIA [None]
  - HYPOPHOSPHATAEMIA [None]
  - HYPOXIA [None]
  - PNEUMONIA [None]
